FAERS Safety Report 8102717-4 (Version None)
Quarter: 2012Q1

REPORT INFORMATION
  Report Type: 
  Country: None (occurrence: None)
  Receive Date: 20120201
  Receipt Date: 20120125
  Transmission Date: 20120608
  Serious: Yes (Other)
  Sender: FDA-Public Use
  Company Number: US-BRISTOL-MYERS SQUIBB COMPANY-16284747

PATIENT
  Age: 58 Year
  Sex: Male

DRUGS (2)
  1. ONGLYZA [Suspect]
     Indication: DIABETES MELLITUS
     Dosage: TAKING FOR A COUPLE OF MONTH
     Route: 048
  2. METFORMIN HCL [Suspect]
     Indication: DIABETES MELLITUS
     Dates: start: 20090521

REACTIONS (8)
  - NASOPHARYNGITIS [None]
  - DYSPEPSIA [None]
  - DIARRHOEA [None]
  - COUGH [None]
  - HICCUPS [None]
  - HYPERTENSION [None]
  - ERUCTATION [None]
  - MALAISE [None]
